FAERS Safety Report 21361829 (Version 1)
Quarter: 2022Q3

REPORT INFORMATION
  Report Type: Spontaneous
  Country: JP (occurrence: JP)
  Receive Date: 20220922
  Receipt Date: 20220922
  Transmission Date: 20221027
  Serious: Yes (Hospitalization, Other)
  Sender: FDA-Public Use
  Company Number: None

PATIENT
  Age: 75 Year
  Sex: Male

DRUGS (4)
  1. PREDNISOLONE [Suspect]
     Active Substance: PREDNISOLONE
     Indication: Pneumonitis
     Dosage: 20 MILLIGRAM PER DAY
     Route: 048
  2. PREDNISOLONE [Suspect]
     Active Substance: PREDNISOLONE
     Dosage: 30 MILLIGRAM PER DAY (0.5 MG/KG PER DAY)
     Route: 048
  3. DURVALUMAB [Suspect]
     Active Substance: DURVALUMAB
     Indication: Metastases to lymph nodes
     Dosage: 120 MILLILITRE PER KILOGRAM, 12 CYCLE (EVERY 2 WEEKS, CONSOLIDATION THERAPY)
     Route: 042
  4. DURVALUMAB [Suspect]
     Active Substance: DURVALUMAB
     Indication: Lung adenocarcinoma stage III

REACTIONS (2)
  - Bronchopleural fistula [Recovered/Resolved]
  - Pneumothorax [Recovered/Resolved]
